FAERS Safety Report 10739194 (Version 2)
Quarter: 2015Q1

REPORT INFORMATION
  Report Type: Spontaneous
  Country: HR (occurrence: HR)
  Receive Date: 20150126
  Receipt Date: 20150203
  Transmission Date: 20150721
  Serious: Yes (Life-Threatening, Other)
  Sender: FDA-Public Use
  Company Number: HR-009507513-1501HRV006547

PATIENT
  Age: 24 Year
  Sex: Female

DRUGS (2)
  1. ESMERON [Suspect]
     Active Substance: ROCURONIUM BROMIDE
     Indication: ANAESTHESIA PROCEDURE
     Dosage: 50 MG, QD
     Route: 042
     Dates: start: 20141107, end: 20141107
  2. THIOPENTAL SODIUM. [Concomitant]
     Active Substance: THIOPENTAL SODIUM
     Dosage: UNK

REACTIONS (12)
  - Eyelid oedema [Recovered/Resolved]
  - Anaphylactic reaction [Recovered/Resolved]
  - Oxygen saturation decreased [Recovered/Resolved]
  - Oedema mucosal [Recovered/Resolved]
  - Hypotension [Recovered/Resolved]
  - Respiratory disorder [Recovered/Resolved]
  - Conjunctival oedema [Recovered/Resolved]
  - Tachycardia [Recovered/Resolved]
  - Bronchospasm [Recovered/Resolved]
  - Dyspnoea [Recovered/Resolved]
  - Hyperhidrosis [Recovered/Resolved]
  - Lip oedema [Recovered/Resolved]

NARRATIVE: CASE EVENT DATE: 20141107
